FAERS Safety Report 7427138-9 (Version None)
Quarter: 2011Q2

REPORT INFORMATION
  Report Type: 
  Country: None (occurrence: None)
  Receive Date: 20110420
  Receipt Date: 20110407
  Transmission Date: 20111010
  Serious: Yes (Other)
  Sender: FDA-Public Use
  Company Number: PHHY2011CA31926

PATIENT
  Sex: Female

DRUGS (2)
  1. AFINITOR [Suspect]
     Indication: NEUROENDOCRINE CARCINOMA
     Dosage: 10 MG, QD
     Route: 048
     Dates: start: 20110225
  2. SANDOSTATIN LAR [Suspect]
     Indication: NEUROENDOCRINE CARCINOMA
     Dosage: 60 MG EVERY 04 WEEKS
     Route: 030
     Dates: start: 20070704

REACTIONS (4)
  - CHILLS [None]
  - DECREASED APPETITE [None]
  - ASTHENIA [None]
  - FEELING ABNORMAL [None]
